FAERS Safety Report 6944842-7 (Version None)
Quarter: 2010Q3

REPORT INFORMATION
  Report Type: 
  Country: None (occurrence: None)
  Receive Date: 20100827
  Receipt Date: 20100819
  Transmission Date: 20110219
  Serious: Yes (Other)
  Sender: FDA-Public Use
  Company Number: CA-JNJFOC-20100705271

PATIENT
  Sex: Female
  Weight: 96.8 kg

DRUGS (3)
  1. REMICADE [Suspect]
     Indication: COLITIS ULCERATIVE
     Dosage: 2ND INFUSION
     Route: 042
  2. REMICADE [Suspect]
     Dosage: (5 MG/KG)
     Route: 042
  3. REMICADE [Suspect]
     Route: 042

REACTIONS (12)
  - ANXIETY [None]
  - CHEST DISCOMFORT [None]
  - CHILLS [None]
  - DYSPNOEA [None]
  - FLUSHING [None]
  - HYPOAESTHESIA [None]
  - INFUSION RELATED REACTION [None]
  - PHARYNGEAL HYPOAESTHESIA [None]
  - RASH [None]
  - SWELLING FACE [None]
  - THROAT IRRITATION [None]
  - TREMOR [None]
